FAERS Safety Report 12710650 (Version 4)
Quarter: 2017Q1

REPORT INFORMATION
  Report Type: Spontaneous
  Country: US (occurrence: US)
  Receive Date: 20160902
  Receipt Date: 20170228
  Transmission Date: 20170428
  Serious: Yes (Other)
  Sender: FDA-Public Use
  Company Number: US-PFIZER INC-2016400471

PATIENT
  Age: 72 Year
  Sex: Female
  Weight: 85 kg

DRUGS (3)
  1. IBRANCE [Suspect]
     Active Substance: PALBOCICLIB
     Dosage: 100 MG, CYCLIC (D1-D21 Q28D)
     Route: 048
     Dates: start: 201604
  2. IBRANCE [Suspect]
     Active Substance: PALBOCICLIB
     Dosage: 100 MG, CYCLIC, (DAY 1-21 Q28 DAYS)
     Route: 048
     Dates: start: 20160825, end: 201612
  3. IBRANCE [Suspect]
     Active Substance: PALBOCICLIB
     Indication: BREAST CANCER METASTATIC
     Dosage: 125 MG, CYCLIC (D1-21 Q 28 DAYS)
     Route: 048

REACTIONS (10)
  - Fatigue [Not Recovered/Not Resolved]
  - Immune system disorder [Unknown]
  - Pain [Unknown]
  - Diarrhoea [Not Recovered/Not Resolved]
  - Thrombosis [Unknown]
  - Platelet count decreased [Unknown]
  - Full blood count decreased [Unknown]
  - Chest discomfort [Unknown]
  - Neoplasm progression [Unknown]
  - Lymphoedema [Unknown]

NARRATIVE: CASE EVENT DATE: 201608
